FAERS Safety Report 20603152 (Version 1)
Quarter: 2022Q1

REPORT INFORMATION
  Report Type: Spontaneous
  Country: US (occurrence: None)
  Receive Date: 20220316
  Receipt Date: 20220316
  Transmission Date: 20220423
  Serious: No
  Sender: FDA-Public Use
  Company Number: None

PATIENT
  Age: 67 Year
  Sex: Female
  Weight: 58.05 kg

DRUGS (9)
  1. XOLAIR [Suspect]
     Active Substance: OMALIZUMAB
     Indication: Urticaria
     Dosage: OTHER FREQUENCY : MONTHLY;?OTHER ROUTE : INJECTION AT DR OFFICE;?
     Route: 050
     Dates: start: 20220119, end: 20220120
  2. Wellbutrin XL 300 mg daily [Concomitant]
  3. maxzide 37.5 mg daily [Concomitant]
  4. trazadone 75 mg nig [Concomitant]
  5. ASPIRIN [Concomitant]
     Active Substance: ASPIRIN
  6. BROMELAINS [Concomitant]
     Active Substance: BROMELAINS
  7. HERBALS\TURMERIC [Concomitant]
     Active Substance: HERBALS\TURMERIC
  8. VITAMIN D NOS [Concomitant]
     Active Substance: VITAMIN D NOS
  9. potassium 99 mg [Concomitant]

REACTIONS (2)
  - Diarrhoea [None]
  - Injection related reaction [None]

NARRATIVE: CASE EVENT DATE: 20220119
